FAERS Safety Report 5972716-7 (Version None)
Quarter: 2008Q4

REPORT INFORMATION
  Report Type: 
  Country: None (occurrence: None)
  Receive Date: 20081125
  Receipt Date: 20081113
  Transmission Date: 20090506
  Serious: Yes (Hospitalization)
  Sender: FDA-Public Use
  Company Number: GXKR2008CH10946

PATIENT
  Age: 86 Year
  Sex: Female

DRUGS (6)
  1. SIMVASTATIN [Suspect]
     Dosage: 40 MG, QD, ORAL
     Route: 048
  2. ALENDRONIC ACID (NGX) (ALENDRONIC ACID) UNKNOWN [Suspect]
     Dosage: 70 MG, QW, ORAL
     Route: 048
  3. METOPROLOL SUCCINATE [Concomitant]
  4. LASIX [Concomitant]
  5. COVERSUM COMBI (INDAPAMIDE, PERINDOPRIL ERBUMINE) [Concomitant]
  6. AMLODIPINE MESILATE (AMLODIPINE MESILATE) [Concomitant]

REACTIONS (7)
  - DYSPNOEA [None]
  - GASTROINTESTINAL HAEMORRHAGE [None]
  - HAEMORRHAGIC ANAEMIA [None]
  - HYPOVOLAEMIA [None]
  - NAUSEA [None]
  - RENAL FAILURE CHRONIC [None]
  - VOMITING [None]
